FAERS Safety Report 9738719 (Version 1)
Quarter: 2013Q4

REPORT INFORMATION
  Report Type: Spontaneous
  Country: AR (occurrence: AR)
  Receive Date: 20131209
  Receipt Date: 20131209
  Transmission Date: 20140711
  Serious: Yes (Disabling)
  Sender: FDA-Public Use
  Company Number: AR-BRISTOL-MYERS SQUIBB COMPANY-19866284

PATIENT
  Sex: Female

DRUGS (2)
  1. IXEMPRA [Suspect]
     Indication: BREAST CANCER
  2. CAPECITABINE [Suspect]
     Indication: BREAST CANCER

REACTIONS (1)
  - Paresis [Unknown]
